FAERS Safety Report 23939328 (Version 1)
Quarter: 2024Q2

REPORT INFORMATION
  Report Type: Other
  Country: KR (occurrence: None)
  Receive Date: 20240605
  Receipt Date: 20240605
  Transmission Date: 20240715
  Serious: Yes (Other)
  Sender: FDA-Public Use
  Company Number: KR-ROCHE-3574800

PATIENT
  Age: 41 Year
  Sex: Female

DRUGS (7)
  1. TRASTUZUMAB [Suspect]
     Active Substance: TRASTUZUMAB
     Indication: Breast cancer metastatic
     Route: 065
  2. TRASTUZUMAB [Suspect]
     Active Substance: TRASTUZUMAB
     Indication: Lymphangiosis carcinomatosa
  3. PERTUZUMAB [Suspect]
     Active Substance: PERTUZUMAB
     Indication: Breast cancer metastatic
     Dosage: PER BODY
     Route: 065
  4. PERTUZUMAB [Suspect]
     Active Substance: PERTUZUMAB
     Indication: Lymphangiosis carcinomatosa
  5. PACLITAXEL [Concomitant]
     Active Substance: PACLITAXEL
  6. SODIUM CHLORIDE [Concomitant]
     Active Substance: SODIUM CHLORIDE
     Dosage: [SALINE] HYDRATION
  7. FEBUXOSTAT [Concomitant]
     Active Substance: FEBUXOSTAT

REACTIONS (1)
  - Disseminated intravascular coagulation [Unknown]
